FAERS Safety Report 11165868 (Version 1)
Quarter: 2015Q2

REPORT INFORMATION
  Report Type: Report from Study
  Country: US (occurrence: US)
  Receive Date: 20150604
  Receipt Date: 20150604
  Transmission Date: 20150821
  Serious: Yes (Other)
  Sender: FDA-Public Use
  Company Number: US-ABBVIE-15P-163-1403364-00

PATIENT
  Age: 61 Year
  Sex: Male

DRUGS (1)
  1. HUMIRA [Suspect]
     Active Substance: ADALIMUMAB
     Indication: RHEUMATOID ARTHRITIS
     Route: 065
     Dates: start: 20141017

REACTIONS (6)
  - Device breakage [Unknown]
  - Cataract [Unknown]
  - Vision blurred [Unknown]
  - Blindness [Unknown]
  - Eye injury [Unknown]
  - Retinal tear [Unknown]

NARRATIVE: CASE EVENT DATE: 20150422
